FAERS Safety Report 6298907-6 (Version None)
Quarter: 2009Q3

REPORT INFORMATION
  Report Type: 
  Country: None (occurrence: None)
  Receive Date: 20090804
  Receipt Date: 20090724
  Transmission Date: 20100115
  Serious: Yes (Life-Threatening, Hospitalization)
  Sender: FDA-Public Use
  Company Number: TPA2009A01736

PATIENT
  Age: 54 Year
  Sex: Male

DRUGS (2)
  1. PREVACID [Suspect]
     Indication: PEPTIC ULCER
     Dosage: 30 MG, 2 IN 1 D, PER ORAL
     Route: 048
     Dates: start: 20080315, end: 20080317
  2. PANTROPRAZOLE (PANTOPRAZOLE) [Suspect]
     Indication: PEPTIC ULCER
     Dosage: 8 MG, 1 IN 1 HR, INTRAVENOUS
     Route: 042
     Dates: start: 20080313, end: 20080314

REACTIONS (10)
  - ADDISON'S DISEASE [None]
  - ADRENAL HAEMORRHAGE [None]
  - ALPHA 1 GLOBULIN INCREASED [None]
  - CELLULITIS [None]
  - INFUSION SITE ERYTHEMA [None]
  - INFUSION SITE OEDEMA [None]
  - RHEUMATOID FACTOR QUANTITATIVE INCREASED [None]
  - SCLERAL HAEMORRHAGE [None]
  - SEPTIC SHOCK [None]
  - TROPONIN I INCREASED [None]
